FAERS Safety Report 9455561 (Version 1)
Quarter: 2013Q3

REPORT INFORMATION
  Report Type: Spontaneous
  Country: US (occurrence: US)
  Receive Date: 20130813
  Receipt Date: 20130813
  Transmission Date: 20140515
  Serious: No
  Sender: FDA-Public Use
  Company Number: US-PFIZER INC-2013232305

PATIENT
  Age: 68 Year
  Sex: Female

DRUGS (3)
  1. CELEBREX [Suspect]
     Indication: PAIN
     Dosage: UNK
  2. LYRICA [Suspect]
     Indication: PAIN
     Dosage: 50 MG ONCE DAILY (QD) AS NEEDED
     Route: 048
  3. LYRICA [Suspect]
     Dosage: 150 MG, 1X/DAY (QHS)
     Route: 048

REACTIONS (3)
  - Vision blurred [Unknown]
  - Pain [Unknown]
  - Drug dose omission [Unknown]
